FAERS Safety Report 7513281-2 (Version None)
Quarter: 2011Q2

REPORT INFORMATION
  Report Type: 
  Country: None (occurrence: None)
  Receive Date: 20110531
  Receipt Date: 20110520
  Transmission Date: 20111010
  Serious: Yes (Hospitalization)
  Sender: FDA-Public Use
  Company Number: HK-JNJFOC-20110509738

PATIENT
  Sex: Male
  Weight: 67.2 kg

DRUGS (5)
  1. BENZHEXOL [Concomitant]
     Dates: start: 20110105, end: 20110125
  2. BENZHEXOL [Concomitant]
     Indication: EXTRAPYRAMIDAL DISORDER
     Dates: start: 20110125
  3. BENZHEXOL [Concomitant]
     Dates: start: 20090421, end: 20110105
  4. PALIPERIDONE [Suspect]
     Indication: SCHIZOPHRENIA
     Route: 030
     Dates: start: 20110503
  5. PALIPERIDONE [Suspect]
     Route: 030
     Dates: start: 20110125

REACTIONS (1)
  - SCHIZOPHRENIA [None]
